FAERS Safety Report 6311026-5 (Version None)
Quarter: 2009Q3

REPORT INFORMATION
  Report Type: 
  Country: None (occurrence: None)
  Receive Date: 20090817
  Receipt Date: 20090807
  Transmission Date: 20100115
  Serious: Yes (Other)
  Sender: FDA-Public Use
  Company Number: US-BIOGENIDEC-2009BI025381

PATIENT
  Sex: Female

DRUGS (3)
  1. AVONEX [Suspect]
     Indication: MULTIPLE SCLEROSIS
     Route: 030
     Dates: start: 20020308
  2. AVONEX [Suspect]
     Route: 030
     Dates: start: 20080425
  3. TEGRETOL [Concomitant]

REACTIONS (2)
  - BALANCE DISORDER [None]
  - THERAPEUTIC AGENT TOXICITY [None]
